FAERS Safety Report 8234467-8 (Version None)
Quarter: 2012Q1

REPORT INFORMATION
  Report Type: 
  Country: None (occurrence: None)
  Receive Date: 20120321
  Receipt Date: 20120307
  Transmission Date: 20120608
  Serious: Yes (Death, Hospitalization, Other)
  Sender: FDA-Public Use
  Company Number: 2009AL004456

PATIENT
  Age: 69 Year
  Sex: Male
  Weight: 69 kg

DRUGS (67)
  1. SYNTHROID [Concomitant]
  2. HYDROCODONE BITARTRATE [Concomitant]
  3. PAXIL [Concomitant]
  4. AMIODARONE HCL [Concomitant]
  5. PROZAC [Concomitant]
  6. LAMICTAL [Concomitant]
  7. COREG [Concomitant]
  8. GLYBURIDE [Concomitant]
  9. LANTUS [Concomitant]
  10. PROTONIX [Concomitant]
  11. LORTAB [Concomitant]
  12. ZOSYN [Concomitant]
  13. AMARYL [Concomitant]
  14. XOPENEX [Concomitant]
  15. NOVOLIN 70/30 [Concomitant]
  16. COREG [Concomitant]
  17. FERROUS SULFATE TAB [Concomitant]
  18. ZAROXOLYN [Concomitant]
  19. BUMEX [Concomitant]
  20. BUMETANIDE [Concomitant]
  21. OLANZAPINE [Concomitant]
  22. HUMALOG [Concomitant]
  23. LEVOXYL [Concomitant]
  24. PRILOSEC [Concomitant]
  25. ASPIRIN [Concomitant]
  26. MYSOLINE [Concomitant]
  27. AVANDIA [Concomitant]
  28. AMITRIPTYLINE HCL [Concomitant]
  29. REGULAR INSULIN [Concomitant]
  30. PRINIVIL [Concomitant]
  31. INSULIN [Concomitant]
  32. LISINOPRIL [Concomitant]
  33. PRIMIDONE [Concomitant]
  34. FERROUS SULFATE TAB [Concomitant]
  35. LASIX [Concomitant]
  36. PACERONE [Concomitant]
  37. VITAMIN B COMPLEX CAP [Concomitant]
  38. DIGOXIN [Suspect]
     Indication: PRODUCT USED FOR UNKNOWN INDICATION
     Dosage: 0.25 MG;QD;PO
     Route: 048
     Dates: start: 20030304, end: 20030402
  39. PACERONE [Concomitant]
  40. ASPIRIN [Concomitant]
  41. THEO-DUR [Concomitant]
  42. POTASSIUM CHLORIDE [Concomitant]
  43. NORCO [Concomitant]
  44. CLINDAMYCIN [Concomitant]
  45. POTASSIUM [Concomitant]
  46. GLUCOPHAGE [Concomitant]
  47. COUMADIN [Concomitant]
  48. GLYNASE [Concomitant]
  49. ATROVENT [Concomitant]
  50. RANITIDINE [Concomitant]
  51. FUROSEMIDE [Concomitant]
  52. LEVAQUIN [Concomitant]
  53. MS CONTIN [Concomitant]
  54. HYDROXYZINE [Concomitant]
  55. QUETIAPINE [Concomitant]
  56. LIPITOR [Concomitant]
  57. ELAVIL [Concomitant]
  58. LANTUS [Concomitant]
  59. AVANDIA [Concomitant]
  60. HYDROCODONE BITARTRATE [Concomitant]
  61. IMDUR [Concomitant]
  62. LAMOTRGINE [Concomitant]
  63. ZANTAC [Concomitant]
  64. LAMIOTAL [Concomitant]
  65. WELLBUTRIN [Concomitant]
  66. LISINOPRIL [Concomitant]
  67. ACIPHEX [Concomitant]

REACTIONS (32)
  - CHOLECYSTITIS [None]
  - AORTIC STENOSIS [None]
  - ANAEMIA [None]
  - BRONCHITIS [None]
  - CONDITION AGGRAVATED [None]
  - HYPOXIC-ISCHAEMIC ENCEPHALOPATHY [None]
  - CORONARY ARTERY DISEASE [None]
  - CARDIO-RESPIRATORY ARREST [None]
  - DILATATION VENTRICULAR [None]
  - GANGRENE [None]
  - OSTEOMYELITIS [None]
  - ECONOMIC PROBLEM [None]
  - CARDIAC FAILURE CONGESTIVE [None]
  - CELLULITIS [None]
  - NEURALGIA [None]
  - SKIN ULCER [None]
  - MULTIPLE INJURIES [None]
  - EJECTION FRACTION DECREASED [None]
  - DYSPNOEA PAROXYSMAL NOCTURNAL [None]
  - PNEUMONIA [None]
  - TOE AMPUTATION [None]
  - MITRAL VALVE INCOMPETENCE [None]
  - ACUTE RESPIRATORY FAILURE [None]
  - RENAL FAILURE ACUTE [None]
  - CHRONIC OBSTRUCTIVE PULMONARY DISEASE [None]
  - MITRAL VALVE CALCIFICATION [None]
  - ATELECTASIS [None]
  - HYPOMAGNESAEMIA [None]
  - SEPSIS [None]
  - CARDIAC VALVE DISEASE [None]
  - DIABETES MELLITUS INADEQUATE CONTROL [None]
  - PULMONARY OEDEMA [None]
